FAERS Safety Report 5688004-2 (Version None)
Quarter: 2008Q1

REPORT INFORMATION
  Report Type: 
  Country: None (occurrence: None)
  Receive Date: 20080328
  Receipt Date: 20061003
  Transmission Date: 20080703
  Serious: No
  Sender: FDA-Public Use
  Company Number: US-BAYER-US-2006-029700

PATIENT
  Age: 39 Year
  Sex: Female

DRUGS (2)
  1. MIRENA [Suspect]
     Indication: CONTRACEPTION
     Route: 015
     Dates: start: 20060710, end: 20060726
  2. SYNTHROID [Concomitant]

REACTIONS (3)
  - ABDOMINAL PAIN [None]
  - IUCD COMPLICATION [None]
  - VAGINAL HAEMORRHAGE [None]
